FAERS Safety Report 12541674 (Version 4)
Quarter: 2016Q4

REPORT INFORMATION
  Report Type: Report from Study
  Country: AU (occurrence: AU)
  Receive Date: 20160708
  Receipt Date: 20161121
  Transmission Date: 20170207
  Serious: Yes (Hospitalization, Other)
  Sender: FDA-Public Use
  Company Number: AU-REGENERON PHARMACEUTICALS, INC.-2016-17588

PATIENT

DRUGS (1)
  1. EYLEA [Suspect]
     Active Substance: AFLIBERCEPT
     Indication: NEOVASCULAR AGE-RELATED MACULAR DEGENERATION
     Dosage: 2 MG, Q3MON (EVERY TWELVE WEEKS)
     Route: 031
     Dates: start: 20150611

REACTIONS (9)
  - Dry eye [Unknown]
  - Paraesthesia [Unknown]
  - Hospitalisation [Unknown]
  - Bone cancer [Unknown]
  - Lung disorder [Unknown]
  - Visual impairment [Unknown]
  - Pulmonary thrombosis [Unknown]
  - Product use issue [Unknown]
  - Vitreous floaters [Unknown]

NARRATIVE: CASE EVENT DATE: 20150611
